FAERS Safety Report 6874633-7 (Version None)
Quarter: 2010Q2

REPORT INFORMATION
  Report Type: 
  Country: None (occurrence: None)
  Receive Date: 20100610
  Receipt Date: 20100505
  Transmission Date: 20101027
  Serious: Yes (Other)
  Sender: FDA-Public Use
  Company Number: 2010SP025542

PATIENT
  Sex: Female

DRUGS (2)
  1. SAPHRIS [Suspect]
     Indication: DRUG USE FOR UNKNOWN INDICATION
     Dosage: SL
  2. LAMICTAL [Concomitant]

REACTIONS (2)
  - DIZZINESS [None]
  - SYNCOPE [None]
